FAERS Safety Report 6005970-6 (Version None)
Quarter: 2008Q4

REPORT INFORMATION
  Report Type: 
  Country: None (occurrence: None)
  Receive Date: 20081217
  Receipt Date: 20081211
  Transmission Date: 20090506
  Serious: Yes (Death)
  Sender: FDA-Public Use
  Company Number: PHHY2008DE31655

PATIENT
  Sex: Male

DRUGS (29)
  1. SANDOSTATIN [Suspect]
     Indication: PANCREATITIS
     Dosage: THREE TIMES
     Route: 058
     Dates: start: 20060420, end: 20060503
  2. LONOLOX [Suspect]
     Indication: HYPERTENSION
     Dosage: 10 MG
     Route: 048
     Dates: start: 20060416, end: 20060422
  3. ACETYLCYSTEINE [Suspect]
     Indication: RESPIRATORY DISORDER
     Dosage: 600 MG, 1-0-0
     Route: 048
     Dates: start: 20060416, end: 20060513
  4. LASIX [Suspect]
     Indication: RENAL FAILURE
     Dosage: 40 MG, 1-0-0
     Route: 048
     Dates: start: 20060416, end: 20060513
  5. PANTOZOL [Suspect]
     Indication: PROPHYLAXIS
     Dosage: 40 MG, 1-0-1
     Route: 048
     Dates: start: 20060416, end: 20060513
  6. CALCIMAGON [Suspect]
     Indication: HYPERPARATHYROIDISM SECONDARY
     Dosage: 500 MG, 1-1-1
     Route: 048
     Dates: start: 20060416, end: 20060513
  7. BONDIOL [Suspect]
     Indication: HYPERPARATHYROIDISM SECONDARY
     Dosage: 0.25 MG, 1-0-0
     Route: 048
     Dates: start: 20060416, end: 20060513
  8. THYRONAJOD [Suspect]
     Dosage: 100 MG, 0-0-1
     Route: 048
     Dates: start: 20060416, end: 20060513
  9. XIPAMIDE [Suspect]
     Indication: HYPERTENSION
     Dosage: 20 MG, 1-0-0
     Route: 048
     Dates: start: 20060417, end: 20060513
  10. LISINOPRIL [Suspect]
     Indication: HYPERTENSION
     Dosage: 5 MG, 1-0-1
     Route: 048
     Dates: start: 20060424, end: 20060513
  11. BISOHEXAL [Suspect]
     Indication: HYPERTENSION
     Dosage: 5 MG
     Route: 048
     Dates: start: 20060424, end: 20060513
  12. ANAESTHETICS, LOCAL [Suspect]
     Dosage: UNK
     Route: 058
     Dates: start: 20080508
  13. OXAZEPAM [Suspect]
     Indication: SEDATION
     Dosage: 10 MG
     Route: 048
     Dates: start: 20080508
  14. CLORAZEPATE DIPOTASSIUM [Suspect]
     Indication: SEDATION
     Dosage: 10 MG
     Route: 048
     Dates: start: 20060508
  15. AUGMENTIN '125' [Suspect]
     Indication: PROPHYLAXIS
     Dosage: 2.2 G
     Dates: start: 20060508
  16. PERFALGAN [Suspect]
     Indication: PYREXIA
     Dosage: 1 G
     Dates: start: 20060508
  17. AQUAPHOR                                /CAN/ [Concomitant]
     Indication: HYPERTENSION
     Dosage: 20 MG
     Route: 048
     Dates: start: 20080416, end: 20080417
  18. BISOPROLOL FUMARATE [Concomitant]
     Indication: HYPERTENSION
     Dosage: 5 MG
     Route: 048
     Dates: start: 20080416, end: 20080423
  19. LISIHEXAL [Concomitant]
     Indication: HYPERTENSION
     Dosage: 5 MG
     Route: 048
     Dates: start: 20080416, end: 20080423
  20. METRONIDAZOLE HCL [Concomitant]
     Indication: SEPSIS
     Dosage: 0.5 G
     Dates: start: 20080411, end: 20080425
  21. MERONEM [Concomitant]
     Indication: SEPSIS
     Dosage: 0.5 G
     Dates: start: 20080411, end: 20080424
  22. HYDROCORTISON                           /CZE/ [Concomitant]
     Dosage: 50 MG
     Dates: start: 20080412, end: 20080430
  23. SODIUM CHLORIDE [Concomitant]
     Dosage: 1000 ML
     Dates: start: 20080411, end: 20080417
  24. BICANORM                           /01764101/ [Concomitant]
     Dosage: UNK
     Route: 048
     Dates: start: 20080416, end: 20080514
  25. DREISAVIT [Concomitant]
     Dosage: UNK
     Route: 048
     Dates: start: 20080417, end: 20080514
  26. VANCOMYCIN [Concomitant]
     Indication: SEPSIS
     Dosage: UNK
     Dates: start: 20080420
  27. VANCOMYCIN [Concomitant]
     Dosage: UNK
     Dates: start: 20080425
  28. VANCOMYCIN [Concomitant]
     Dosage: 1 G
     Dates: start: 20080430
  29. NEPHRO-VITE [Concomitant]
     Dosage: 1000 ML
     Dates: start: 20080424, end: 20080503

REACTIONS (9)
  - BLISTER [None]
  - EROSIVE OESOPHAGITIS [None]
  - HEPATIC FAILURE [None]
  - MUCOSAL EROSION [None]
  - OCULAR HYPERAEMIA [None]
  - PYREXIA [None]
  - SEPSIS [None]
  - STEVENS-JOHNSON SYNDROME [None]
  - TOXIC EPIDERMAL NECROLYSIS [None]
